FAERS Safety Report 8701556 (Version 5)
Quarter: 2013Q1

REPORT INFORMATION
  Report Type: Report from Study
  Country: US (occurrence: US)
  Receive Date: 20120803
  Receipt Date: 20130116
  Transmission Date: 20140127
  Serious: Yes (Hospitalization)
  Sender: FDA-Public Use
  Company Number: US-009507513-1206USA02615

PATIENT
  Age: 69 Year
  Sex: Female
  Weight: 88.7 kg

DRUGS (2)
  1. VORINOSTAT [Suspect]
     Indication: GLIOBLASTOMA MULTIFORME
     Dosage: 300 MG, Q5W
     Route: 048
     Dates: start: 20120605, end: 20120725
  2. TEMOZOLOMIDE [Suspect]
     Indication: GLIOBLASTOMA MULTIFORME
     Dosage: 75 MG/M2, QD
     Route: 048
     Dates: start: 20120605, end: 20120708

REACTIONS (3)
  - Headache [Recovered/Resolved with Sequelae]
  - Wound infection [Recovered/Resolved with Sequelae]
  - Medical device complication [Recovered/Resolved with Sequelae]
